FAERS Safety Report 23975680 (Version 1)
Quarter: 2024Q2

REPORT INFORMATION
  Report Type: Spontaneous
  Country: US (occurrence: US)
  Receive Date: 20240614
  Receipt Date: 20240614
  Transmission Date: 20240716
  Serious: No
  Sender: FDA-Public Use
  Company Number: US-SA-SAC20240610000302

PATIENT
  Age: 22 Year
  Sex: Male

DRUGS (1)
  1. FABRAZYME [Suspect]
     Active Substance: AGALSIDASE BETA
     Indication: Fabry^s disease
     Dosage: 50 MG(35MG+15MG), QOW
     Route: 042
     Dates: start: 202401, end: 2024

REACTIONS (1)
  - Illness [Unknown]

NARRATIVE: CASE EVENT DATE: 20240101
